FAERS Safety Report 7596229 (Version 11)
Quarter: 2012Q4

REPORT INFORMATION
  Report Type: 
  Country: US (occurrence: US)
  Receive Date: 20100920
  Receipt Date: 20121128
  Transmission Date: 20130627
  Serious: Yes (Hospitalization, Other)
  Sender: FDA-Public Use
  Company Number: US-ASTRAZENECA-2010SE21479

PATIENT
  Age: 69 Year
  Sex: Female
  Weight: 86.2 kg

DRUGS (32)
  1. NEXIUM [Suspect]
     Indication: DYSPEPSIA
     Route: 048
  2. NEXIUM [Suspect]
     Indication: GASTROOESOPHAGEAL REFLUX DISEASE
     Route: 048
  3. NEXIUM [Suspect]
     Indication: DYSPEPSIA
     Route: 048
  4. NEXIUM [Suspect]
     Indication: GASTROOESOPHAGEAL REFLUX DISEASE
     Route: 048
  5. SEROQUEL [Suspect]
     Indication: ANTIDEPRESSANT THERAPY
     Route: 048
     Dates: start: 2009, end: 201006
  6. SEROQUEL [Suspect]
     Indication: SLEEP DISORDER
     Route: 048
     Dates: start: 2009, end: 201006
  7. SEROQUEL [Suspect]
     Indication: ANXIETY
     Route: 048
     Dates: start: 2009, end: 201006
  8. SEROQUEL [Suspect]
     Indication: NERVOUSNESS
     Route: 048
     Dates: start: 2009, end: 201006
  9. SEROQUEL [Suspect]
     Indication: ANTIDEPRESSANT THERAPY
     Route: 048
     Dates: start: 201006, end: 2010
  10. SEROQUEL [Suspect]
     Indication: SLEEP DISORDER
     Route: 048
     Dates: start: 201006, end: 2010
  11. SEROQUEL [Suspect]
     Indication: ANXIETY
     Route: 048
     Dates: start: 201006, end: 2010
  12. SEROQUEL [Suspect]
     Indication: NERVOUSNESS
     Route: 048
     Dates: start: 201006, end: 2010
  13. SEROQUEL [Suspect]
     Indication: ANTIDEPRESSANT THERAPY
     Route: 048
  14. SEROQUEL [Suspect]
     Indication: SLEEP DISORDER
     Route: 048
  15. SEROQUEL [Suspect]
     Indication: ANXIETY
     Route: 048
  16. SEROQUEL [Suspect]
     Indication: NERVOUSNESS
     Route: 048
  17. SEROQUEL [Suspect]
     Indication: ANTIDEPRESSANT THERAPY
     Route: 048
  18. SEROQUEL [Suspect]
     Indication: SLEEP DISORDER
     Route: 048
  19. SEROQUEL [Suspect]
     Indication: ANXIETY
     Route: 048
  20. SEROQUEL [Suspect]
     Indication: NERVOUSNESS
     Route: 048
  21. CITALOPRAM [Concomitant]
     Indication: DEPRESSION
  22. CLONAZEPAM [Concomitant]
     Indication: ANXIETY
  23. ATIVAN [Concomitant]
     Indication: ANXIETY
     Route: 048
     Dates: start: 1997
  24. ATIVAN [Concomitant]
     Indication: SLEEP DISORDER
     Route: 048
     Dates: start: 1997
  25. ATIVAN [Concomitant]
     Indication: ANXIETY
     Route: 048
  26. ATIVAN [Concomitant]
     Indication: SLEEP DISORDER
     Route: 048
  27. ATIVAN [Concomitant]
     Indication: ANXIETY
     Route: 048
  28. ATIVAN [Concomitant]
     Indication: SLEEP DISORDER
     Route: 048
  29. ROBAXIN [Concomitant]
     Indication: MUSCLE SPASMS
  30. METHOCARBAMOL [Concomitant]
     Indication: PAIN
  31. HYDROCODONE [Concomitant]
     Indication: PAIN
  32. BLOOD PRESSURE MED [Concomitant]
     Indication: BLOOD PRESSURE ABNORMAL

REACTIONS (29)
  - Renal failure acute [Recovering/Resolving]
  - Cerebral haemorrhage [Unknown]
  - Dysphonia [Unknown]
  - Nervousness [Unknown]
  - Irregular sleep phase [Unknown]
  - Poor quality sleep [Unknown]
  - Feeling abnormal [Unknown]
  - Feeling jittery [Unknown]
  - Arthritis [Unknown]
  - Osteoporosis [Unknown]
  - Pain [Unknown]
  - Regurgitation [Unknown]
  - Chest discomfort [Unknown]
  - Memory impairment [Unknown]
  - Abnormal dreams [Unknown]
  - Tremor [Unknown]
  - Fatigue [Unknown]
  - Agitation [Unknown]
  - Dizziness postural [Recovered/Resolved]
  - Initial insomnia [Unknown]
  - Insomnia [Unknown]
  - Middle insomnia [Unknown]
  - Depression [Unknown]
  - Treatment noncompliance [Unknown]
  - Somnolence [Recovered/Resolved]
  - Intentional drug misuse [Unknown]
  - Drug dose omission [Unknown]
  - Drug ineffective [Unknown]
  - Off label use [Unknown]
